FAERS Safety Report 11625887 (Version 16)
Quarter: 2016Q3

REPORT INFORMATION
  Report Type: Spontaneous
  Country: US (occurrence: US)
  Receive Date: 20151013
  Receipt Date: 20160729
  Transmission Date: 20161109
  Serious: No
  Sender: FDA-Public Use
  Company Number: US-PFIZER INC-2015315993

PATIENT
  Age: 72 Year
  Sex: Female
  Weight: 103 kg

DRUGS (10)
  1. LEVOTHYROXINE. [Concomitant]
     Active Substance: LEVOTHYROXINE
     Indication: HYPOTHYROIDISM
     Dosage: 112 UG, DAILY
  2. SUTENT [Suspect]
     Active Substance: SUNITINIB MALATE
     Indication: RENAL CELL CARCINOMA STAGE IV
     Dosage: 50 MG, UNK
     Route: 048
     Dates: start: 20150806
  3. SUTENT [Suspect]
     Active Substance: SUNITINIB MALATE
     Dosage: 37.5 MG, CYCLIC (2 WEEKS ON/1 WEEK OFF)
  4. SUTENT [Suspect]
     Active Substance: SUNITINIB MALATE
     Dosage: 37.5 MG, CYCLIC (28 DAYS ON/14 DAYS OFF)
     Dates: start: 2015, end: 20160206
  5. TYLENOL [Concomitant]
     Active Substance: ACETAMINOPHEN
     Dosage: UNK
  6. SUTENT [Suspect]
     Active Substance: SUNITINIB MALATE
     Dosage: 37.5 MG, CYCLIC, (2 WEEKS ON/1 WEEK OFF)
     Dates: start: 20150806, end: 20160415
  7. HYDROCHLOROTHIAZIDE. [Concomitant]
     Active Substance: HYDROCHLOROTHIAZIDE
     Indication: HYPERTENSION
     Dosage: 25 MG, DAILY
  8. SUTENT [Suspect]
     Active Substance: SUNITINIB MALATE
     Dosage: 25 MG, CYCLIC (28 DAYS ON/14 DAYS OFF)
     Dates: start: 20160510
  9. SYNTHROID [Concomitant]
     Active Substance: LEVOTHYROXINE SODIUM
     Dosage: UNK
  10. METOPROLOL. [Concomitant]
     Active Substance: METOPROLOL
     Indication: HYPERTENSION
     Dosage: 50 MG, 1X/DAY
     Route: 048

REACTIONS (30)
  - Oral pain [Recovered/Resolved]
  - Lip dry [Unknown]
  - Chapped lips [Unknown]
  - Nausea [Recovered/Resolved]
  - Dyspepsia [Unknown]
  - Feeling abnormal [Recovering/Resolving]
  - Skin reaction [Recovered/Resolved]
  - Constipation [Unknown]
  - Hair colour changes [Unknown]
  - Breast pain [Recovering/Resolving]
  - Gait disturbance [Recovering/Resolving]
  - Vulvovaginal burning sensation [Unknown]
  - Arthritis [Unknown]
  - Alopecia [Recovering/Resolving]
  - Gingival pain [Unknown]
  - Hair texture abnormal [Unknown]
  - Tooth discolouration [Unknown]
  - Radiculopathy [Unknown]
  - Nail growth abnormal [Unknown]
  - Tooth disorder [Unknown]
  - Dry skin [Unknown]
  - Ear discomfort [Unknown]
  - Oropharyngeal pain [Unknown]
  - Musculoskeletal chest pain [Recovering/Resolving]
  - Pain in extremity [Recovering/Resolving]
  - Fatigue [Not Recovered/Not Resolved]
  - Diarrhoea [Unknown]
  - Headache [Unknown]
  - Skin reaction [Recovering/Resolving]
  - Hyperkeratosis [Recovering/Resolving]

NARRATIVE: CASE EVENT DATE: 2015
